FAERS Safety Report 10210320 (Version 3)
Quarter: 2014Q4

REPORT INFORMATION
  Report Type: Spontaneous
  Country: US (occurrence: US)
  Receive Date: 20140602
  Receipt Date: 20141008
  Transmission Date: 20150528
  Serious: Yes (Death, Hospitalization, Other)
  Sender: FDA-Public Use
  Company Number: US-009507513-1406USA000469

PATIENT
  Sex: Male
  Weight: 63.49 kg

DRUGS (2)
  1. JANUVIA [Suspect]
     Active Substance: SITAGLIPTIN PHOSPHATE
     Indication: TYPE 2 DIABETES MELLITUS
     Dosage: 100 MG, QD
     Route: 048
     Dates: start: 200710, end: 20110426
  2. LISINOPRIL. [Concomitant]
     Active Substance: LISINOPRIL
     Indication: HYPERTENSION
     Dosage: UNK
     Dates: start: 2006, end: 2011

REACTIONS (20)
  - Fall [Unknown]
  - Diverticulum intestinal [Unknown]
  - Decreased appetite [Unknown]
  - Neutropenia [Unknown]
  - Hypoaesthesia [Unknown]
  - Fatigue [Recovering/Resolving]
  - Pancreatic carcinoma metastatic [Unknown]
  - Gastrointestinal haemorrhage [Unknown]
  - Coronary artery disease [Unknown]
  - Pneumonia [Recovering/Resolving]
  - Anaemia [Unknown]
  - Decreased appetite [Recovering/Resolving]
  - Diabetes mellitus inadequate control [Unknown]
  - Visual impairment [Unknown]
  - Death [Fatal]
  - Metastases to liver [Unknown]
  - Dysaesthesia [Unknown]
  - Dyspnoea [Unknown]
  - Palpitations [Unknown]
  - Dizziness [Unknown]

NARRATIVE: CASE EVENT DATE: 20110426
